FAERS Safety Report 19388253 (Version 1)
Quarter: 2021Q2

REPORT INFORMATION
  Report Type: Spontaneous
  Country: US (occurrence: US)
  Receive Date: 20210607
  Receipt Date: 20210607
  Transmission Date: 20210717
  Serious: No
  Sender: FDA-Public Use
  Company Number: US-PERRIGO-21US003436

PATIENT
  Age: 40 Year
  Sex: Male
  Weight: 96.15 kg

DRUGS (1)
  1. MINOXIDIL. [Suspect]
     Active Substance: MINOXIDIL
     Indication: ALOPECIA
     Dosage: UNKNOWN, BID
     Route: 061
     Dates: start: 20210225, end: 20210303

REACTIONS (6)
  - Application site discomfort [Recovering/Resolving]
  - Swelling face [Recovering/Resolving]
  - Application site pruritus [Recovering/Resolving]
  - Application site rash [Recovering/Resolving]
  - Headache [Recovering/Resolving]
  - Application site ulcer [Recovering/Resolving]

NARRATIVE: CASE EVENT DATE: 20210228
